FAERS Safety Report 8301043-8 (Version None)
Quarter: 2012Q2

REPORT INFORMATION
  Report Type: 
  Country: None (occurrence: None)
  Receive Date: 20120420
  Receipt Date: 20120411
  Transmission Date: 20120825
  Serious: Yes (Other)
  Sender: FDA-Public Use
  Company Number: US-BAYER-2012-027052

PATIENT
  Age: 29 Year
  Sex: Female

DRUGS (1)
  1. MIRENA [Suspect]
     Indication: CONTRACEPTION
     Dosage: 20 MCG/24HR, CONT
     Route: 015
     Dates: start: 20120301, end: 20120314

REACTIONS (7)
  - PELVIC DISCOMFORT [None]
  - PROCEDURAL PAIN [None]
  - DEVICE EXPULSION [None]
  - POST PROCEDURAL HAEMORRHAGE [None]
  - HYPERSENSITIVITY [None]
  - INSOMNIA [None]
  - POST PROCEDURAL DISCOMFORT [None]
